FAERS Safety Report 4348251-9 (Version None)
Quarter: 2004Q1

REPORT INFORMATION
  Report Type: 
  Country: None (occurrence: None)
  Receive Date: 20040329
  Receipt Date: 20031125
  Transmission Date: 20041129
  Serious: No
  Sender: FDA-Public Use
  Company Number: USA031153444

PATIENT
  Age: 11 Year
  Sex: Female
  Weight: 45 kg

DRUGS (3)
  1. STRATTERA [Suspect]
     Dosage: 30 MG/IN THE MORNING
     Dates: start: 20030701
  2. TENEX [Concomitant]
  3. LEXAPRO [Concomitant]

REACTIONS (4)
  - DYSPHAGIA [None]
  - FATIGUE [None]
  - MIDDLE INSOMNIA [None]
  - RETCHING [None]
